FAERS Safety Report 11108947 (Version 1)
Quarter: 2015Q2

REPORT INFORMATION
  Report Type: Spontaneous
  Country: US (occurrence: None)
  Receive Date: 20150511
  Receipt Date: 20150511
  Transmission Date: 20150821
  Serious: Yes (Other)
  Sender: FDA-Public Use
  Company Number: None

PATIENT
  Age: 42 Year
  Sex: Male
  Weight: 102.06 kg

DRUGS (1)
  1. BUTRANS [Suspect]
     Active Substance: BUPRENORPHINE
     Indication: PAIN
     Dosage: APPLIED AS MEDICATED PATCH TO SKIN
     Dates: start: 20150101, end: 20150509

REACTIONS (2)
  - Application site vesicles [None]
  - Application site reaction [None]

NARRATIVE: CASE EVENT DATE: 20150501
